FAERS Safety Report 9366397 (Version 1)
Quarter: 2013Q2

REPORT INFORMATION
  Report Type: Spontaneous
  Country: US (occurrence: US)
  Receive Date: 20130625
  Receipt Date: 20130625
  Transmission Date: 20140414
  Serious: Yes (Life-Threatening, Other)
  Sender: FDA-Public Use
  Company Number: US-JNJFOC-20130609134

PATIENT
  Sex: 0

DRUGS (18)
  1. DOXORUBICIN [Suspect]
     Indication: SARCOMA
     Dosage: OVER 48 HOURS ON DAY 1; INTRAVENOUS INFUSION; CYCLES 1 AND 3
     Route: 042
  2. DOXORUBICIN [Suspect]
     Indication: RHABDOMYOSARCOMA
     Dosage: OVER 48 HOURS ON DAY 1; INTRAVENOUS INFUSION; CYCLES 1 AND 3
     Route: 042
  3. DOXORUBICIN [Suspect]
     Indication: EWING^S SARCOMA
     Dosage: OVER 48 HOURS ON DAY 1; INTRAVENOUS INFUSION; CYCLES 1 AND 3
     Route: 042
  4. VINCRISTINE [Suspect]
     Indication: SARCOMA
     Dosage: ON DAY 1, 8 AND 15; INTRAVENOUS PUSH; CYCLES 1 AND 3;
     Route: 042
  5. VINCRISTINE [Suspect]
     Indication: RHABDOMYOSARCOMA
     Dosage: ON DAY 1, 8 AND 15; INTRAVENOUS PUSH; CYCLES 1 AND 3;
     Route: 042
  6. VINCRISTINE [Suspect]
     Indication: EWING^S SARCOMA
     Dosage: ON DAY 1, 8 AND 15; INTRAVENOUS PUSH; CYCLES 1 AND 3;
     Route: 042
  7. CYCLOPHOSPHAMIDE [Suspect]
     Indication: EWING^S SARCOMA
     Dosage: ON DAY 1 AND 2 OVER 1 HOUR; CYCLES 1 AND 3
     Route: 042
  8. CYCLOPHOSPHAMIDE [Suspect]
     Indication: RHABDOMYOSARCOMA
     Dosage: ON DAY 1 AND 2 OVER 1 HOUR; CYCLES 1 AND 3
     Route: 042
  9. CYCLOPHOSPHAMIDE [Suspect]
     Indication: SARCOMA
     Dosage: ON DAY 1 AND 2 OVER 1 HOUR; CYCLES 1 AND 3
     Route: 042
  10. IFOSFAMIDE [Suspect]
     Indication: SARCOMA
     Dosage: OVER 1 HOUR FOR 5 DAYS; CYCLES 2 AND 4
     Route: 042
  11. IFOSFAMIDE [Suspect]
     Indication: RHABDOMYOSARCOMA
     Dosage: OVER 1 HOUR FOR 5 DAYS; CYCLES 2 AND 4
     Route: 042
  12. IFOSFAMIDE [Suspect]
     Indication: EWING^S SARCOMA
     Dosage: OVER 1 HOUR FOR 5 DAYS; CYCLES 2 AND 4
     Route: 042
  13. ETOPOSIDE [Suspect]
     Indication: SARCOMA
     Dosage: OVER 1 HOUR FOR 5 DAYS
     Route: 042
  14. ETOPOSIDE [Suspect]
     Indication: RHABDOMYOSARCOMA
     Dosage: OVER 1 HOUR FOR 5 DAYS
     Route: 042
  15. ETOPOSIDE [Suspect]
     Indication: EWING^S SARCOMA
     Dosage: OVER 1 HOUR FOR 5 DAYS
     Route: 042
  16. MESNA [Suspect]
     Indication: PROPHYLAXIS
     Dosage: ON DAY 1 AND 2 OVER 1 HOUR; FOUR DOSES BY CONTINUOUS INFUSION OR BOLUS AT REGULAR INTERVALS
     Route: 042
  17. PEGFILGRASTIM [Suspect]
     Indication: COLONY STIMULATING FACTOR THERAPY
     Dosage: ON DAY 1 AND 2 OVER 1 HOUR; BY SINGLE INJECTION 24 HOURS AFTER COMPLETION OF CHEMOTHERAPY
     Route: 058
  18. FILGRASTIM [Suspect]
     Indication: COLONY STIMULATING FACTOR THERAPY
     Dosage: ON DAY 1 AND 2 OVER 1 HOUR; BY SINGLE INJECTION 24 HOURS AFTER COMPLETION OF CHEMOTHERAPY
     Route: 058

REACTIONS (20)
  - Febrile neutropenia [Unknown]
  - Neutropenia [Unknown]
  - Anaemia [Unknown]
  - Thrombocytopenia [Unknown]
  - Vomiting [Unknown]
  - Device related infection [Unknown]
  - Alopecia [Unknown]
  - Constipation [Unknown]
  - Diarrhoea [Unknown]
  - Pyrexia [Unknown]
  - Dehydration [Unknown]
  - Colitis [Unknown]
  - Otitis media [Unknown]
  - Decreased appetite [Unknown]
  - Hypokalaemia [Unknown]
  - Anxiety [Unknown]
  - Hallucination [Unknown]
  - Hypoxia [Unknown]
  - Platelet count decreased [Unknown]
  - Off label use [Unknown]
